FAERS Safety Report 20746608 (Version 1)
Quarter: 2022Q2

REPORT INFORMATION
  Report Type: Spontaneous
  Country: US (occurrence: None)
  Receive Date: 20220425
  Receipt Date: 20220425
  Transmission Date: 20220721
  Serious: Yes (Other)
  Sender: FDA-Public Use
  Company Number: None

PATIENT
  Age: 38 Year
  Sex: Female
  Weight: 125.9 kg

DRUGS (1)
  1. VENOFER [Suspect]
     Active Substance: IRON SUCROSE
     Indication: Anaemia
     Dosage: OTHER FREQUENCY : ONCE OVER 90 MIN;?OTHER ROUTE : IVPB;?
     Route: 050
     Dates: start: 20220328

REACTIONS (3)
  - Dizziness [None]
  - Flushing [None]
  - Infusion related reaction [None]

NARRATIVE: CASE EVENT DATE: 20220420
